FAERS Safety Report 14132885 (Version 3)
Quarter: 2017Q4

REPORT INFORMATION
  Report Type: Report from Study
  Country: DE (occurrence: DE)
  Receive Date: 20171027
  Receipt Date: 20171104
  Transmission Date: 20180321
  Serious: Yes (Hospitalization)
  Sender: FDA-Public Use
  Company Number: DE-ROCHE-2011328

PATIENT
  Age: 61 Year
  Sex: Female
  Weight: 65 kg

DRUGS (7)
  1. 5-FLUOROURACIL [Suspect]
     Active Substance: FLUOROURACIL
     Indication: ADENOCARCINOMA GASTRIC
     Dosage: MOST RECENT DOSE RECEIVED ON 11/OCT/2017
     Route: 065
  2. TRASTUZUMAB. [Suspect]
     Active Substance: TRASTUZUMAB
     Indication: ADENOCARCINOMA GASTRIC
     Dosage: MOST RECENT DOSE 04/OCT/2017
     Route: 065
     Dates: start: 20170419
  3. DOCETAXEL. [Suspect]
     Active Substance: DOCETAXEL
     Indication: ADENOCARCINOMA GASTRIC
     Dosage: MOST RECENT DOSE RECEIVED ON 11/OCT/2017
     Route: 065
  4. CIPROBAY [Concomitant]
     Active Substance: CIPROFLOXACIN
  5. FOLINIC ACID [Suspect]
     Active Substance: LEUCOVORIN
     Indication: ADENOCARCINOMA GASTRIC
     Dosage: MOST RECENT DOSE RECEIVED ON 11/OCT/2017
     Route: 065
  6. OXALIPLATIN. [Suspect]
     Active Substance: OXALIPLATIN
     Indication: ADENOCARCINOMA GASTRIC
     Dosage: MOST RECENT DOSE RECEIVED ON 11/OCT/2017
     Route: 065
  7. PERTUZUMAB. [Suspect]
     Active Substance: PERTUZUMAB
     Indication: ADENOCARCINOMA GASTRIC
     Dosage: MOST RECENT DOSE 04/OCT/2017
     Route: 065
     Dates: start: 20170419

REACTIONS (2)
  - Abdominal pain [Recovered/Resolved]
  - Urinary tract infection [Recovered/Resolved]

NARRATIVE: CASE EVENT DATE: 20171017
